FAERS Safety Report 7802113-0 (Version None)
Quarter: 2011Q4

REPORT INFORMATION
  Report Type: 
  Country: None (occurrence: None)
  Receive Date: 20111007
  Receipt Date: 20111006
  Transmission Date: 20120403
  Serious: Yes (Death, Life-Threatening, Hospitalization, Other)
  Sender: FDA-Public Use
  Company Number: JP-B.I. PHARMACEUTICALS,INC./RIDGEFIELD-2011-BP-20384NB

PATIENT
  Age: 69 Year
  Sex: Male
  Weight: 74.8 kg

DRUGS (2)
  1. DIGOXIN [Concomitant]
     Route: 065
  2. PRADAXA [Suspect]
     Dosage: 300 MG
     Route: 048
     Dates: start: 20110724, end: 20110810

REACTIONS (7)
  - ANEURYSM RUPTURED [None]
  - HAEMATEMESIS [None]
  - GASTROINTESTINAL HAEMORRHAGE [None]
  - HAEMORRHAGE [None]
  - POST PROCEDURAL HAEMORRHAGE [None]
  - HEPATIC FAILURE [None]
  - PORTAL VEIN OCCLUSION [None]
